FAERS Safety Report 8962534 (Version 1)
Quarter: 2012Q4

REPORT INFORMATION
  Report Type: Spontaneous
  Country: US (occurrence: None)
  Receive Date: 20121211
  Receipt Date: 20121211
  Transmission Date: 20130627
  Serious: Yes (Other)
  Sender: FDA-Public Use
  Company Number: None

PATIENT
  Age: 80 Year
  Sex: Female
  Weight: 44.91 kg

DRUGS (2)
  1. FENTANYL [Suspect]
     Indication: ARTHRITIS
     Route: 061
     Dates: start: 20121117, end: 20121119
  2. FENTANYL [Suspect]
     Route: 061
     Dates: start: 20121117, end: 20121119

REACTIONS (2)
  - VIIth nerve paralysis [None]
  - Swelling [None]
